FAERS Safety Report 15805724 (Version 3)
Quarter: 2019Q1

REPORT INFORMATION
  Report Type: Spontaneous
  Country: US (occurrence: US)
  Receive Date: 20190110
  Receipt Date: 20190128
  Transmission Date: 20190417
  Serious: No
  Sender: FDA-Public Use
  Company Number: US-SA-2018SA388182

PATIENT
  Age: 56 Year
  Sex: Female

DRUGS (1)
  1. LANTUS SOLOSTAR [Suspect]
     Active Substance: INSULIN GLARGINE
     Indication: TYPE 1 DIABETES MELLITUS
     Dosage: 25 U, BID
     Route: 065

REACTIONS (7)
  - Product storage error [Unknown]
  - Blood glucose increased [Unknown]
  - Corrective lens user [Unknown]
  - Visual impairment [Unknown]
  - Device issue [Unknown]
  - Product use issue [Unknown]
  - Underdose [Unknown]
